FAERS Safety Report 17150429 (Version 1)
Quarter: 2019Q4

REPORT INFORMATION
  Report Type: Spontaneous
  Country: US (occurrence: US)
  Receive Date: 20191213
  Receipt Date: 20191213
  Transmission Date: 20200122
  Serious: No
  Sender: FDA-Public Use
  Company Number: US-ASTRAZENECA-2019SF64998

PATIENT
  Sex: Female

DRUGS (2)
  1. VENTOLIN [Concomitant]
     Active Substance: ALBUTEROL SULFATE
  2. PULMICORT FLEXHALER [Suspect]
     Active Substance: BUDESONIDE
     Dosage: 180.0UG/INHAL UNKNOWN
     Route: 055

REACTIONS (5)
  - Chest discomfort [Unknown]
  - Drug ineffective [Unknown]
  - Product dose omission [Unknown]
  - Drug delivery system malfunction [Unknown]
  - Dyspnoea [Unknown]
